FAERS Safety Report 4696459-5 (Version None)
Quarter: 2005Q2

REPORT INFORMATION
  Report Type: 
  Country: None (occurrence: None)
  Receive Date: 20050621
  Receipt Date: 20050617
  Transmission Date: 20051028
  Serious: Yes (Other)
  Sender: FDA-Public Use
  Company Number: US-MERCK-0506USA02781

PATIENT
  Age: 38 Year
  Sex: Female

DRUGS (4)
  1. FOSAMAX [Suspect]
     Indication: OSTEOPENIA
     Route: 048
     Dates: start: 20020101
  2. PREDNISONE [Concomitant]
     Route: 065
  3. ADVAIR [Concomitant]
     Route: 065
  4. CORTICOSTEROIDS (UNSPECIFIED) [Concomitant]
     Route: 055

REACTIONS (1)
  - JAW CYST [None]
